FAERS Safety Report 21972354 (Version 2)
Quarter: 2023Q4

REPORT INFORMATION
  Report Type: Spontaneous
  Country: US (occurrence: US)
  Receive Date: 20230209
  Receipt Date: 20231229
  Transmission Date: 20240110
  Serious: No
  Sender: FDA-Public Use
  Company Number: US-BRISTOL-MYERS SQUIBB COMPANY-2023-019157

PATIENT
  Age: 90 Year
  Sex: Male

DRUGS (4)
  1. REVLIMID [Suspect]
     Active Substance: LENALIDOMIDE
     Indication: Plasma cell myeloma
     Dosage: FREQ: EVERY OTHER DAY?FREQ: 14
     Route: 048
     Dates: start: 20221130
  2. REVLIMID [Suspect]
     Active Substance: LENALIDOMIDE
     Indication: Neoplasm malignant
  3. REVLIMID [Suspect]
     Active Substance: LENALIDOMIDE
     Indication: Metastases to breast
  4. REVLIMID [Suspect]
     Active Substance: LENALIDOMIDE
     Indication: Plasma cell myeloma

REACTIONS (8)
  - Dizziness [Unknown]
  - Rash pruritic [Unknown]
  - Blood pressure increased [Recovered/Resolved]
  - Muscle spasms [Unknown]
  - Dry skin [Unknown]
  - Productive cough [Unknown]
  - Rash [Unknown]
  - Off label use [Unknown]
